FAERS Safety Report 6954964-2 (Version None)
Quarter: 2010Q3

REPORT INFORMATION
  Report Type: 
  Country: None (occurrence: None)
  Receive Date: 20100830
  Receipt Date: 20100817
  Transmission Date: 20110219
  Serious: Yes (Other)
  Sender: FDA-Public Use
  Company Number: CO-TYCO HEALTHCARE/MALLINCKRODT-T201001822

PATIENT
  Age: 25 Year
  Sex: Female

DRUGS (5)
  1. OPTIRAY 350 [Suspect]
     Indication: COMPUTERISED TOMOGRAM ABDOMEN
     Dosage: 100 ML, SINGLE
     Dates: start: 20100404, end: 20100404
  2. GENTAMICIN [Concomitant]
     Dosage: 240 MG, UNK
     Route: 042
  3. AMPICILLIN SODIUM [Concomitant]
     Dosage: 3 G, UNK
     Route: 042
  4. RANITIDINE HCL [Concomitant]
     Dosage: 2 ML, UNK
     Route: 042
  5. DALTEPARIN SODIUM [Concomitant]
     Dosage: UNK

REACTIONS (3)
  - DYSPNOEA [None]
  - PRURITUS GENERALISED [None]
  - THROAT IRRITATION [None]
